FAERS Safety Report 7659799-3 (Version None)
Quarter: 2011Q3

REPORT INFORMATION
  Report Type: 
  Country: None (occurrence: None)
  Receive Date: 20110805
  Receipt Date: 20110729
  Transmission Date: 20111222
  Serious: Yes (Hospitalization)
  Sender: FDA-Public Use
  Company Number: PHHY2011DE69535

PATIENT
  Age: 63 Year
  Sex: Male

DRUGS (3)
  1. VERAPAMIL [Suspect]
     Indication: ADENOMA BENIGN
  2. DOXAZOSIN MESYLATE [Suspect]
     Indication: ADENOMA BENIGN
     Dosage: UNK
  3. SPIRONOLACTONE [Suspect]
     Indication: ADENOMA BENIGN

REACTIONS (4)
  - HYPERTENSION [None]
  - ATRIAL FIBRILLATION [None]
  - CARDIAC FAILURE [None]
  - HYPOKALAEMIA [None]
